FAERS Safety Report 20251232 (Version 3)
Quarter: 2022Q1

REPORT INFORMATION
  Report Type: Spontaneous
  Country: UA (occurrence: None)
  Receive Date: 20211229
  Receipt Date: 20220114
  Transmission Date: 20220423
  Serious: Yes (Other)
  Sender: FDA-Public Use
  Company Number: 2021A900711

PATIENT
  Age: 38 Year
  Sex: Male
  Weight: 86 kg

DRUGS (4)
  1. SYMBICORT [Suspect]
     Active Substance: BUDESONIDE\FORMOTEROL FUMARATE DIHYDRATE
     Indication: Asthma
     Dosage: 160 MCG FOR 1 INHALATION 2 TIMES A DAY
     Route: 055
     Dates: start: 20211218, end: 20211218
  2. SYMBICORT [Suspect]
     Active Substance: BUDESONIDE\FORMOTEROL FUMARATE DIHYDRATE
     Indication: Asthma
     Dosage: 160 MCG FOR 2 INHALATION 2 TIMES A DAY
     Route: 055
     Dates: start: 20211219, end: 20211222
  3. VENTOLIN NEBULA [Concomitant]
  4. ZOLOPENT [Concomitant]

REACTIONS (3)
  - Asthma [Recovered/Resolved]
  - Dysgeusia [Recovered/Resolved]
  - Drug ineffective [Unknown]

NARRATIVE: CASE EVENT DATE: 20211218
